FAERS Safety Report 6489240-8 (Version None)
Quarter: 2009Q4

REPORT INFORMATION
  Report Type: 
  Country: None (occurrence: None)
  Receive Date: 20091210
  Receipt Date: 20090930
  Transmission Date: 20100525
  Serious: No
  Sender: FDA-Public Use
  Company Number: US-AMGEN-KDL367105

PATIENT
  Sex: Female

DRUGS (1)
  1. ENBREL [Suspect]
     Indication: PSORIASIS
     Route: 058
     Dates: start: 20090620

REACTIONS (6)
  - DRUG INEFFECTIVE [None]
  - HAEMORRHAGE [None]
  - IMPAIRED HEALING [None]
  - PAIN IN EXTREMITY [None]
  - PSORIASIS [None]
  - TOOTH INFECTION [None]
